FAERS Safety Report 24982756 (Version 2)
Quarter: 2025Q1

REPORT INFORMATION
  Report Type: Report from Study
  Country: JP (occurrence: JP)
  Receive Date: 20250218
  Receipt Date: 20250221
  Transmission Date: 20250409
  Serious: Yes (Death)
  Sender: EISAI
  Company Number: JP-Eisai-202415104_LEQ_P_1

PATIENT
  Age: 86 Year
  Sex: Female
  Weight: 57 kg

DRUGS (6)
  1. LEQEMBI [Suspect]
     Active Substance: LECANEMAB-IRMB
     Indication: Cognitive disorder
     Dates: start: 20250115, end: 20250212
  2. LEMBOREXANT [Concomitant]
     Active Substance: LEMBOREXANT
  3. ASPIRIN [Concomitant]
     Active Substance: ASPIRIN
  4. REMINYL [Concomitant]
     Active Substance: GALANTAMINE
  5. FELBINAC [Concomitant]
     Active Substance: FELBINAC
  6. CALONAL [Concomitant]
     Active Substance: ACETAMINOPHEN

REACTIONS (1)
  - Aortic dissection [Fatal]

NARRATIVE: CASE EVENT DATE: 20250212
